FAERS Safety Report 4467071-8 (Version None)
Quarter: 2004Q4

REPORT INFORMATION
  Report Type: 
  Country: None (occurrence: None)
  Receive Date: 20041004
  Receipt Date: 20040920
  Transmission Date: 20050328
  Serious: Yes (Other)
  Sender: FDA-Public Use
  Company Number: 2004234508US

PATIENT
  Sex: Female

DRUGS (2)
  1. PROVERA [Suspect]
     Indication: HORMONE REPLACEMENT THERAPY
     Dosage: 5 MG, QD,
     Dates: start: 19930101, end: 19970101
  2. PREMARIN [Suspect]
     Indication: HORMONE REPLACEMENT THERAPY
     Dosage: 0.625 MG, QD,
     Dates: start: 19930101, end: 19970101

REACTIONS (5)
  - BREAST CANCER IN SITU [None]
  - HOT FLUSH [None]
  - MENSTRUATION IRREGULAR [None]
  - MOOD SWINGS [None]
  - NIGHT SWEATS [None]
